FAERS Safety Report 17794343 (Version 4)
Quarter: 2020Q4

REPORT INFORMATION
  Report Type: Report from Study
  Country: FR (occurrence: FR)
  Receive Date: 20200515
  Receipt Date: 20201015
  Transmission Date: 20210113
  Serious: Yes (Hospitalization, Other)
  Sender: FDA-Public Use
  Company Number: FR-MYLANLABS-2020M1047848

PATIENT
  Age: 72 Year
  Sex: Male
  Weight: 71 kg

DRUGS (16)
  1. ZARZIO [Concomitant]
     Active Substance: FILGRASTIM
     Dosage: 480 MICROGRAM, 3XW
     Route: 065
     Dates: start: 20200414
  2. LANSOPRAZOLE. [Concomitant]
     Active Substance: LANSOPRAZOLE
     Indication: GASTROOESOPHAGEAL REFLUX DISEASE
     Dosage: 30 MILLIGRAM, QD
     Route: 048
     Dates: start: 20190928
  3. DEXAMETHASONE. [Suspect]
     Active Substance: DEXAMETHASONE
     Indication: B-CELL LYMPHOMA
     Dosage: 40 MG, 4 DOSE DAILY PER 21-DAY CYCLE
     Route: 048
     Dates: start: 20190802, end: 20190920
  4. SPECIAFOLDINE [Concomitant]
     Active Substance: FOLIC ACID
     Indication: FOLATE DEFICIENCY
     Dosage: 5 MILLIGRAM, 3XW
     Route: 048
     Dates: start: 20190802
  5. BISOPROLOL [Concomitant]
     Active Substance: BISOPROLOL
     Indication: HYPERTENSION
     Dosage: 10 MILLIGRAM, QD
     Route: 048
  6. AVODART [Concomitant]
     Active Substance: DUTASTERIDE
     Indication: BENIGN PROSTATIC HYPERPLASIA
     Dosage: 0.5 MILLIGRAM, QD
     Route: 048
  7. CISPLATIN. [Suspect]
     Active Substance: CISPLATIN
     Indication: B-CELL LYMPHOMA
     Dosage: 190 MILLIGRAM, Q2W(190 MG, 1 DOSE 3 WEEKS)
     Route: 042
     Dates: start: 20190802, end: 20190917
  8. BACTRIM [Concomitant]
     Active Substance: SULFAMETHOXAZOLE\TRIMETHOPRIM
     Indication: INFECTION PROPHYLAXIS
     Dosage: 1 DOSAGE FORM, 3XW
     Route: 048
     Dates: start: 202001
  9. ETOPOSIDE. [Suspect]
     Active Substance: ETOPOSIDE
     Indication: B-CELL LYMPHOMA
     Dosage: 190 MG, 2 DOSE DAILY
     Route: 042
     Dates: start: 20191010, end: 20191014
  10. ZELITREX [Concomitant]
     Active Substance: VALACYCLOVIR HYDROCHLORIDE
     Indication: INFECTION PROPHYLAXIS
     Dosage: 1000 MILLIGRAM, BID
     Route: 048
     Dates: start: 20190801
  11. CYTARABINE. [Suspect]
     Active Substance: CYTARABINE
     Dosage: 390 MG, BID
     Route: 042
     Dates: start: 20191010, end: 20191014
  12. RITUXIMAB. [Suspect]
     Active Substance: RITUXIMAB
     Indication: B-CELL LYMPHOMA
     Dosage: 740 MILLIGRAM, Q3W(740 MG, 1 DOSE 3 WEEKS)(710 MILLIGRAM, Q3W)
     Route: 042
     Dates: start: 20190802, end: 20190917
  13. CARMUSTINE. [Suspect]
     Active Substance: CARMUSTINE
     Indication: B-CELL LYMPHOMA
     Dosage: 580 MG, SINGLE
     Route: 042
     Dates: start: 20191010, end: 20191010
  14. ZARZIO [Concomitant]
     Active Substance: FILGRASTIM
     Indication: NEUTROPENIA
     Dosage: 480 MICROGRAM, QW
     Route: 058
     Dates: start: 20200311, end: 20200412
  15. MELPHALAN. [Suspect]
     Active Substance: MELPHALAN
     Indication: B-CELL LYMPHOMA
     Dosage: 270 MG, SINGLE
     Route: 042
     Dates: start: 20191014, end: 20191014
  16. CYTARABINE. [Suspect]
     Active Substance: CYTARABINE
     Indication: B-CELL LYMPHOMA
     Dosage: 7800 MILLIGRAM, QD(3900 MG, 2 DOSE DAILY PER 21-DAY CYCLE)
     Route: 042
     Dates: start: 20190802, end: 20190918

REACTIONS (2)
  - Off label use [Unknown]
  - Bronchopulmonary aspergillosis [Recovered/Resolved]

NARRATIVE: CASE EVENT DATE: 20200407
